FAERS Safety Report 4478423-4 (Version None)
Quarter: 2004Q4

REPORT INFORMATION
  Report Type: 
  Country: None (occurrence: None)
  Receive Date: 20041018
  Receipt Date: 20041018
  Transmission Date: 20050328
  Serious: Yes (Life-Threatening, Hospitalization)
  Sender: FDA-Public Use
  Company Number: None

PATIENT
  Age: 58 Year
  Sex: Female
  Weight: 54.4316 kg

DRUGS (2)
  1. FLUPHENAZINE [Suspect]
     Indication: PSYCHOTIC DISORDER
     Route: 048
     Dates: start: 20040801, end: 20041012
  2. LITHIUM CARBONATE [Suspect]
     Indication: MANIA
     Route: 048
     Dates: start: 20040801, end: 20041012

REACTIONS (9)
  - AKINESIA [None]
  - BLOOD PRESSURE INCREASED [None]
  - HEART RATE INCREASED [None]
  - HYPERTHERMIA [None]
  - LEUKOCYTOSIS [None]
  - MUSCLE RIGIDITY [None]
  - RESPIRATORY DEPRESSION [None]
  - RESPIRATORY FAILURE [None]
  - SPEECH DISORDER [None]
